FAERS Safety Report 4871318-3 (Version None)
Quarter: 2005Q4

REPORT INFORMATION
  Report Type: 
  Country: None (occurrence: None)
  Receive Date: 20051229
  Receipt Date: 20051220
  Transmission Date: 20060501
  Serious: Yes (Hospitalization)
  Sender: FDA-Public Use
  Company Number: TPA2005A01314

PATIENT
  Age: 51 Year
  Sex: Female
  Weight: 105.6881 kg

DRUGS (4)
  1. PIOGLITAZONE HCL [Suspect]
     Indication: GLUCOSE TOLERANCE IMPAIRED
     Dosage: 1 IN 1 D, PER ORAL
     Route: 048
     Dates: start: 20041209, end: 20050926
  2. UNISOM [Concomitant]
  3. VITAMIN B12 [Concomitant]
  4. CENTRUM MATURE (CENTRUM) (TABLETS) [Concomitant]

REACTIONS (18)
  - AORTIC VALVE INCOMPETENCE [None]
  - CARDIAC STRESS TEST ABNORMAL [None]
  - CHEST PAIN [None]
  - COUGH [None]
  - EJECTION FRACTION DECREASED [None]
  - ELECTROCARDIOGRAM ABNORMAL [None]
  - ELECTROCARDIOGRAM ST-T CHANGE [None]
  - ELECTROCARDIOGRAM T WAVE AMPLITUDE DECREASED [None]
  - ELECTROCARDIOGRAM T WAVE INVERSION [None]
  - FALSE POSITIVE LABORATORY RESULT [None]
  - GASTROOESOPHAGEAL REFLUX DISEASE [None]
  - HYPERLIPIDAEMIA [None]
  - MITRAL VALVE INCOMPETENCE [None]
  - MYOCARDIAL ISCHAEMIA [None]
  - PULMONARY VALVE INCOMPETENCE [None]
  - QRS AXIS ABNORMAL [None]
  - TRICUSPID VALVE INCOMPETENCE [None]
  - VENTRICULAR HYPERTROPHY [None]
